FAERS Safety Report 6277347-X (Version None)
Quarter: 2009Q3

REPORT INFORMATION
  Report Type: 
  Country: None (occurrence: None)
  Receive Date: 20090722
  Receipt Date: 20090415
  Transmission Date: 20100115
  Serious: No
  Sender: FDA-Public Use
  Company Number: US-BRISTOL-MYERS SQUIBB COMPANY-14588164

PATIENT
  Age: 85 Year
  Sex: Male
  Weight: 80 kg

DRUGS (1)
  1. COUMADIN [Suspect]
     Dosage: 1 DF= 1 TABLET DAILY FOR 5 DAYS A WEEK AND 2 TABS THE REMAINING DAYS/WEEK.

REACTIONS (6)
  - ASTHENIA [None]
  - DRY SKIN [None]
  - EPISTAXIS [None]
  - PAIN IN EXTREMITY [None]
  - PRURITUS [None]
  - SKIN EXFOLIATION [None]
